FAERS Safety Report 21942209 (Version 1)
Quarter: 2023Q1

REPORT INFORMATION
  Report Type: Report from Study
  Country: US (occurrence: US)
  Receive Date: 20230202
  Receipt Date: 20230202
  Transmission Date: 20230417
  Serious: No
  Sender: FDA-Public Use
  Company Number: US-EXELIXIS-CABO-22056898

PATIENT
  Age: 62 Year
  Sex: Male

DRUGS (3)
  1. CABOMETYX [Suspect]
     Active Substance: CABOZANTINIB S-MALATE
     Indication: Renal cancer
     Dosage: 80 MG, QD (TWO TABLETS OF 40 MG DAILY)
     Route: 048
     Dates: start: 20221001, end: 202210
  2. CABOMETYX [Suspect]
     Active Substance: CABOZANTINIB S-MALATE
     Indication: Metastases to bone
     Dosage: 40 MG, QD
     Route: 048
     Dates: start: 20221015
  3. CABOMETYX [Suspect]
     Active Substance: CABOZANTINIB S-MALATE
     Indication: Prostate cancer

REACTIONS (5)
  - Appetite disorder [Unknown]
  - Diarrhoea [Unknown]
  - Blood pressure increased [Unknown]
  - Nausea [Unknown]
  - Accidental overdose [Unknown]

NARRATIVE: CASE EVENT DATE: 20221001
